FAERS Safety Report 9123489 (Version 1)
Quarter: 2013Q1

REPORT INFORMATION
  Report Type: Spontaneous
  Country: US (occurrence: US)
  Receive Date: 20130115
  Receipt Date: 20130115
  Transmission Date: 20140127
  Serious: No
  Sender: FDA-Public Use
  Company Number: US-BAYER-2013-004212

PATIENT
  Sex: Female

DRUGS (2)
  1. SAFYRAL [Suspect]
     Indication: CONTRACEPTION
     Dosage: UNK
  2. SAFYRAL [Suspect]
     Indication: ACNE

REACTIONS (3)
  - Drug dose omission [None]
  - Oligomenorrhoea [None]
  - Hypomenorrhoea [None]
